FAERS Safety Report 25799778 (Version 1)
Quarter: 2025Q3

REPORT INFORMATION
  Report Type: Spontaneous
  Country: US (occurrence: US)
  Receive Date: 20250914
  Receipt Date: 20250914
  Transmission Date: 20251021
  Serious: No
  Sender: ELI LILLY AND COMPANY
  Company Number: US-ELI_LILLY_AND_COMPANY-US202507005174

PATIENT
  Age: 71 Year
  Sex: Female

DRUGS (16)
  1. MOUNJARO [Suspect]
     Active Substance: TIRZEPATIDE
     Indication: Weight control
     Route: 065
  2. MOUNJARO [Suspect]
     Active Substance: TIRZEPATIDE
     Indication: Weight control
     Route: 065
  3. MOUNJARO [Suspect]
     Active Substance: TIRZEPATIDE
     Indication: Weight control
     Route: 065
  4. MOUNJARO [Suspect]
     Active Substance: TIRZEPATIDE
     Indication: Weight control
     Route: 065
  5. MOUNJARO [Suspect]
     Active Substance: TIRZEPATIDE
     Indication: Sleep apnoea syndrome
  6. MOUNJARO [Suspect]
     Active Substance: TIRZEPATIDE
     Indication: Sleep apnoea syndrome
  7. MOUNJARO [Suspect]
     Active Substance: TIRZEPATIDE
     Indication: Sleep apnoea syndrome
  8. MOUNJARO [Suspect]
     Active Substance: TIRZEPATIDE
     Indication: Sleep apnoea syndrome
  9. MOUNJARO [Suspect]
     Active Substance: TIRZEPATIDE
     Indication: Weight control
     Route: 065
     Dates: start: 202508
  10. MOUNJARO [Suspect]
     Active Substance: TIRZEPATIDE
     Indication: Weight control
     Route: 065
     Dates: start: 202508
  11. MOUNJARO [Suspect]
     Active Substance: TIRZEPATIDE
     Indication: Weight control
     Route: 065
     Dates: start: 202508
  12. MOUNJARO [Suspect]
     Active Substance: TIRZEPATIDE
     Indication: Weight control
     Route: 065
     Dates: start: 202508
  13. MOUNJARO [Suspect]
     Active Substance: TIRZEPATIDE
     Indication: Sleep apnoea syndrome
  14. MOUNJARO [Suspect]
     Active Substance: TIRZEPATIDE
     Indication: Sleep apnoea syndrome
  15. MOUNJARO [Suspect]
     Active Substance: TIRZEPATIDE
     Indication: Sleep apnoea syndrome
  16. MOUNJARO [Suspect]
     Active Substance: TIRZEPATIDE
     Indication: Sleep apnoea syndrome

REACTIONS (5)
  - Wrong technique in product usage process [Recovering/Resolving]
  - Off label use [Unknown]
  - Incorrect dose administered [Recovering/Resolving]
  - Product administered at inappropriate site [Recovering/Resolving]
  - Injection site pain [Recovering/Resolving]

NARRATIVE: CASE EVENT DATE: 20250903
